FAERS Safety Report 22692198 (Version 3)
Quarter: 2023Q4

REPORT INFORMATION
  Report Type: Spontaneous
  Country: US (occurrence: US)
  Receive Date: 20230711
  Receipt Date: 20231020
  Transmission Date: 20240109
  Serious: No
  Sender: FDA-Public Use
  Company Number: US-PFIZER INC-202300243636

PATIENT
  Age: 48 Year
  Sex: Female

DRUGS (2)
  1. OXBRYTA [Suspect]
     Active Substance: VOXELOTOR
     Dosage: 1500 MG, 1X/DAY
     Route: 048
     Dates: start: 202305
  2. OXBRYTA [Suspect]
     Active Substance: VOXELOTOR
     Dosage: 1500 MG, DAILY
     Dates: start: 2023

REACTIONS (3)
  - Vision blurred [Not Recovered/Not Resolved]
  - Dyspnoea [Recovering/Resolving]
  - Abdominal discomfort [Not Recovered/Not Resolved]
